FAERS Safety Report 6272755-5 (Version None)
Quarter: 2009Q3

REPORT INFORMATION
  Report Type: 
  Country: None (occurrence: None)
  Receive Date: 20090716
  Receipt Date: 20090716
  Transmission Date: 20100115
  Serious: Yes (Other)
  Sender: FDA-Public Use
  Company Number: None

PATIENT
  Age: 18 Month
  Sex: Male
  Weight: 14.9687 kg

DRUGS (2)
  1. TRIAMCINOLONE 0.1% CRE [Suspect]
     Indication: DERMATITIS CONTACT
     Dosage: APPLY SPARINGLY TWICE A DAY
     Dates: start: 20090623
  2. TRIAMCINOLONE 0.1% CRE [Suspect]
     Indication: DERMATITIS CONTACT
     Dosage: APPLY SPARINGLY TWICE A DAY
     Dates: start: 20090624

REACTIONS (3)
  - CHEMICAL BURN OF SKIN [None]
  - ERYTHEMA [None]
  - URTICARIA [None]
